FAERS Safety Report 8561440-2 (Version None)
Quarter: 2012Q3

REPORT INFORMATION
  Report Type: 
  Country: None (occurrence: None)
  Receive Date: 20120802
  Receipt Date: 20120712
  Transmission Date: 20120928
  Serious: Yes (Other)
  Sender: FDA-Public Use
  Company Number: JP-GLAXOSMITHKLINE-B0814536A

PATIENT
  Sex: Male

DRUGS (9)
  1. LAMICTAL [Suspect]
     Dosage: 50MG PER DAY
     Route: 048
     Dates: start: 20120712
  2. SILECE [Concomitant]
     Indication: INSOMNIA
     Dosage: 2MG PER DAY
     Route: 048
  3. BLONANSERIN [Suspect]
     Dosage: 24MG PER DAY
     Route: 048
     Dates: start: 20120628
  4. LAMICTAL [Suspect]
     Indication: SCHIZOPHRENIA
     Dosage: 25MG PER DAY
     Route: 048
     Dates: start: 20120628, end: 20120711
  5. SEROQUEL [Suspect]
     Indication: PSYCHOTIC DISORDER
     Dosage: 25MG PER DAY
     Route: 048
     Dates: start: 20120101
  6. EPINASTINE HYDROCHLORIDE [Concomitant]
     Indication: DERMATITIS ALLERGIC
     Dosage: 20MG PER DAY
     Route: 048
     Dates: start: 20120501
  7. BLONANSERIN [Suspect]
     Indication: PRODUCT USED FOR UNKNOWN INDICATION
     Dosage: 8MG PER DAY
     Route: 048
     Dates: start: 20120619, end: 20120624
  8. BLONANSERIN [Suspect]
     Dosage: 16MG PER DAY
     Route: 048
     Dates: start: 20120625, end: 20120627
  9. HIRNAMIN [Concomitant]
     Indication: PSYCHOTIC DISORDER
     Dates: start: 20120619

REACTIONS (6)
  - ALANINE AMINOTRANSFERASE INCREASED [None]
  - GAMMA-GLUTAMYLTRANSFERASE INCREASED [None]
  - ASPARTATE AMINOTRANSFERASE INCREASED [None]
  - HEPATIC FUNCTION ABNORMAL [None]
  - BLOOD ALKALINE PHOSPHATASE INCREASED [None]
  - BLOOD LACTATE DEHYDROGENASE INCREASED [None]
